FAERS Safety Report 5406018-4 (Version None)
Quarter: 2007Q3

REPORT INFORMATION
  Report Type: 
  Country: None (occurrence: None)
  Receive Date: 20070806
  Receipt Date: 20070731
  Transmission Date: 20080115
  Serious: Yes (Other)
  Sender: FDA-Public Use
  Company Number: A0656854A

PATIENT
  Age: 45 Year
  Sex: Male
  Weight: 83.2 kg

DRUGS (1)
  1. AVANDIA [Suspect]
     Indication: DRUG USE FOR UNKNOWN INDICATION
     Dosage: 4MG PER DAY
     Route: 048
     Dates: start: 20040101, end: 20070101

REACTIONS (7)
  - CARDIOVASCULAR DISORDER [None]
  - CHEST PAIN [None]
  - DILATATION ATRIAL [None]
  - HYPOGLYCAEMIA [None]
  - ILL-DEFINED DISORDER [None]
  - MALAISE [None]
  - MUSCULOSKELETAL CHEST PAIN [None]
